FAERS Safety Report 12608852 (Version 3)
Quarter: 2016Q4

REPORT INFORMATION
  Report Type: Spontaneous
  Country: US (occurrence: US)
  Receive Date: 20160730
  Receipt Date: 20161124
  Transmission Date: 20170207
  Serious: No
  Sender: FDA-Public Use
  Company Number: US-ASTRAZENECA-2016SE71876

PATIENT
  Age: 957 Month
  Sex: Female
  Weight: 97.5 kg

DRUGS (4)
  1. WARFARIN [Concomitant]
     Active Substance: WARFARIN
  2. BYDUREON [Suspect]
     Active Substance: EXENATIDE
     Indication: TYPE 2 DIABETES MELLITUS
     Route: 058
     Dates: start: 201312
  3. METFORMIN [Concomitant]
     Active Substance: METFORMIN HYDROCHLORIDE
     Indication: TYPE 2 DIABETES MELLITUS
  4. METROPOLOL [Suspect]
     Active Substance: METOPROLOL
     Route: 065

REACTIONS (7)
  - Weight increased [Unknown]
  - Product colour issue [Unknown]
  - Inadequate diet [Unknown]
  - Injection site haemorrhage [Unknown]
  - Weight decreased [Unknown]
  - Memory impairment [Unknown]
  - Device malfunction [Unknown]

NARRATIVE: CASE EVENT DATE: 201605
